FAERS Safety Report 4929538-5 (Version None)
Quarter: 2006Q1

REPORT INFORMATION
  Report Type: 
  Country: None (occurrence: None)
  Receive Date: 20060127
  Receipt Date: 20051112
  Transmission Date: 20060701
  Serious: Yes (Other)
  Sender: FDA-Public Use
  Company Number: 2005155032

PATIENT
  Age: 75 Year
  Sex: Female
  Weight: 49.8957 kg

DRUGS (7)
  1. LYRICA [Suspect]
     Indication: BACK PAIN
     Dosage: 150 MG (75 MG, 2 IN 1 D), ORAL
     Route: 048
     Dates: start: 20051101, end: 20051101
  2. VALSARTAN [Concomitant]
  3. TOPROL-XL [Concomitant]
  4. SYNTHROID [Concomitant]
  5. ANACIN (ACETYLSALICYLIC ACID, CAFFEINE) [Concomitant]
  6. LAXATIVES [Concomitant]
  7. HYDROXYZINE PAMOATE [Concomitant]

REACTIONS (3)
  - DIZZINESS [None]
  - DRUG EFFECT DECREASED [None]
  - OEDEMA PERIPHERAL [None]
